FAERS Safety Report 9029007 (Version 1)
Quarter: 2013Q1

REPORT INFORMATION
  Report Type: Spontaneous
  Country: NL (occurrence: NL)
  Receive Date: 20130122
  Receipt Date: 20130122
  Transmission Date: 20140127
  Serious: Yes (Other)
  Sender: FDA-Public Use
  Company Number: PHHY2013NL005650

PATIENT
  Sex: Male

DRUGS (1)
  1. GILENYA [Suspect]
     Indication: MULTIPLE SCLEROSIS
     Route: 048
     Dates: start: 20120523

REACTIONS (3)
  - Central nervous system lesion [Recovering/Resolving]
  - Brain oedema [Recovering/Resolving]
  - Visual acuity reduced [Recovering/Resolving]
